FAERS Safety Report 5930894-X (Version None)
Quarter: 2008Q4

REPORT INFORMATION
  Report Type: 
  Country: None (occurrence: None)
  Receive Date: 20081022
  Receipt Date: 20081002
  Transmission Date: 20090506
  Serious: Yes (Other)
  Sender: FDA-Public Use
  Company Number: 20080270

PATIENT
  Age: 38 Year
  Sex: Female

DRUGS (1)
  1. VENOFER [Suspect]
     Indication: ANAEMIA
     Dosage: 200MG IN 100 ML NS X 4 DAYS INTRAVENOUS
     Route: 042
     Dates: start: 20080417, end: 20080420

REACTIONS (1)
  - THROMBOPHLEBITIS [None]
